FAERS Safety Report 6728585-0 (Version None)
Quarter: 2010Q2

REPORT INFORMATION
  Report Type: 
  Country: None (occurrence: None)
  Receive Date: 20100517
  Receipt Date: 20100507
  Transmission Date: 20101027
  Serious: Yes (Other)
  Sender: FDA-Public Use
  Company Number: US-PFIZER INC-2010058759

PATIENT
  Sex: Male
  Weight: 70.3 kg

DRUGS (3)
  1. VFEND [Suspect]
     Indication: CHRONIC GRANULOMATOUS DISEASE
     Dosage: 200 MG, 2X/DAY
     Dates: start: 19980901, end: 20000404
  2. VFEND [Suspect]
     Indication: ASPERGILLOSIS
  3. SEPTRA [Concomitant]
     Dosage: UNK

REACTIONS (1)
  - SQUAMOUS CELL CARCINOMA [None]
